FAERS Safety Report 23972251 (Version 3)
Quarter: 2024Q2

REPORT INFORMATION
  Report Type: Spontaneous
  Country: US (occurrence: US)
  Receive Date: 20240613
  Receipt Date: 20240624
  Transmission Date: 20240717
  Serious: No
  Sender: FDA-Public Use
  Company Number: US-PFIZER INC-PV202400076875

PATIENT
  Age: 73 Year
  Sex: Female

DRUGS (2)
  1. IBRANCE [Suspect]
     Active Substance: PALBOCICLIB
     Dosage: 125 MG
  2. IBRANCE [Suspect]
     Active Substance: PALBOCICLIB
     Dosage: 100 MG, CYCLIC (TAKE ONE TABLET DAILY DAYS 1-21, THEN 7 DAYS OFF)
     Route: 048

REACTIONS (4)
  - Malaise [Unknown]
  - Communication disorder [Unknown]
  - Cognitive disorder [Unknown]
  - White blood cell count decreased [Unknown]
